FAERS Safety Report 20507333 (Version 1)
Quarter: 2022Q1

REPORT INFORMATION
  Report Type: Spontaneous
  Country: CN (occurrence: CN)
  Receive Date: 20220223
  Receipt Date: 20220223
  Transmission Date: 20220423
  Serious: Yes (Other)
  Sender: FDA-Public Use
  Company Number: CN-PFIZER INC-202200257053

PATIENT
  Age: 6 Year
  Sex: Female
  Weight: 25 kg

DRUGS (3)
  1. AZITHROMYCIN [Suspect]
     Active Substance: AZITHROMYCIN
     Indication: Bronchitis
     Dosage: 0.25 G, 1X/DAY (AFTER MEALS)
     Route: 048
     Dates: start: 20220129, end: 20220129
  2. HERBALS [Suspect]
     Active Substance: HERBALS
     Indication: Bronchitis
     Dosage: 6 G, 3X/DAY
     Route: 048
     Dates: start: 20220129, end: 20220129
  3. COMPOUND PHOLCODINE [EPHEDRINE HYDROCHLORIDE;GUAIFENESIN;PHOLCODINE] [Concomitant]
     Indication: Bronchitis
     Dosage: 6 ML, 3X/DAY (AFTER MEALS)
     Route: 048
     Dates: start: 20220129, end: 20220129

REACTIONS (1)
  - Anaphylactic shock [Recovering/Resolving]

NARRATIVE: CASE EVENT DATE: 20220129
